FAERS Safety Report 15191308 (Version 2)
Quarter: 2018Q3

REPORT INFORMATION
  Report Type: Spontaneous
  Country: JP (occurrence: JP)
  Receive Date: 20180724
  Receipt Date: 20180726
  Transmission Date: 20181010
  Serious: Yes (Death)
  Sender: FDA-Public Use
  Company Number: JP-EISAI MEDICAL RESEARCH-EC-2018-043147

PATIENT
  Sex: Male

DRUGS (1)
  1. LENVIMA [Suspect]
     Active Substance: LENVATINIB
     Indication: HEPATOCELLULAR CARCINOMA
     Route: 048
     Dates: start: 20180524, end: 20180722

REACTIONS (3)
  - Varicose vein ruptured [Fatal]
  - Hepatic failure [Fatal]
  - Hyperammonaemia [Fatal]

NARRATIVE: CASE EVENT DATE: 20180722
